FAERS Safety Report 4425855-6 (Version None)
Quarter: 2004Q3

REPORT INFORMATION
  Report Type: 
  Country: None (occurrence: None)
  Receive Date: 20040811
  Receipt Date: 20040729
  Transmission Date: 20050211
  Serious: Yes (Other)
  Sender: FDA-Public Use
  Company Number: 04-00414

PATIENT
  Age: 49 Year
  Sex: Male
  Weight: 85.9 kg

DRUGS (9)
  1. CLONAZEPAM [Suspect]
     Indication: GRAND MAL CONVULSION
     Dosage: 0.02 MG/KG/DAY,
  2. HALPERIDOL (HALDOL) [Concomitant]
  3. PROPRANOLOL (INDERAL) [Concomitant]
  4. NORPRAMIN [Concomitant]
  5. COGENTIN [Concomitant]
  6. PHENYTOIN [Concomitant]
  7. DEPAKOTE [Concomitant]
  8. FLUVOXAMINE (LUVOX) [Concomitant]
  9. LORAZEPAM [Concomitant]

REACTIONS (2)
  - AGGRESSION [None]
  - CONDITION AGGRAVATED [None]
